FAERS Safety Report 9057135 (Version 1)
Quarter: 2013Q1

REPORT INFORMATION
  Report Type: Spontaneous
  Country: US (occurrence: US)
  Receive Date: 20130131
  Receipt Date: 20130131
  Transmission Date: 20140127
  Serious: Yes (Death)
  Sender: FDA-Public Use
  Company Number: US-PFIZER INC-2013034210

PATIENT
  Age: 19 Year
  Sex: Female
  Weight: 58.96 kg

DRUGS (2)
  1. XANAX [Suspect]
     Dosage: UNK
  2. ADDERALL [Concomitant]
     Dosage: UNK

REACTIONS (1)
  - Death [Fatal]
